FAERS Safety Report 13921197 (Version 2)
Quarter: 2017Q4

REPORT INFORMATION
  Report Type: Spontaneous
  Country: KR (occurrence: KR)
  Receive Date: 20170830
  Receipt Date: 20171005
  Transmission Date: 20180320
  Serious: Yes (Death)
  Sender: FDA-Public Use
  Company Number: KR-ASTRAZENECA-2017SE87614

PATIENT
  Age: 81 Year
  Sex: Female

DRUGS (6)
  1. LEVOTUSS [Concomitant]
     Active Substance: LEVODROPROPIZINE
  2. TAGRISSO [Suspect]
     Active Substance: OSIMERTINIB
     Route: 048
     Dates: start: 20170621
  3. ERDOS [Concomitant]
  4. MUCOSTA [Concomitant]
     Active Substance: REBAMIPIDE
  5. ULTRACET [Concomitant]
     Active Substance: ACETAMINOPHEN\TRAMADOL HYDROCHLORIDE
  6. STOGAR [Concomitant]
     Active Substance: LAFUTIDINE

REACTIONS (1)
  - Malignant neoplasm progression [Fatal]
